FAERS Safety Report 14536428 (Version 1)
Quarter: 2018Q1

REPORT INFORMATION
  Report Type: Spontaneous
  Country: US (occurrence: US)
  Receive Date: 20180215
  Receipt Date: 20180215
  Transmission Date: 20180509
  Serious: Yes (Hospitalization)
  Sender: FDA-Public Use
  Company Number: None

PATIENT
  Age: 86 Year
  Sex: Female
  Weight: 104.1 kg

DRUGS (11)
  1. DIPHENHYDRAMINE. [Concomitant]
     Active Substance: DIPHENHYDRAMINE
  2. ENOXAPARIN [Concomitant]
     Active Substance: ENOXAPARIN
  3. DOCUSATE [Concomitant]
     Active Substance: DOCUSATE
  4. FAMOTIDINE. [Concomitant]
     Active Substance: FAMOTIDINE
  5. FUROSEMIDE. [Suspect]
     Active Substance: FUROSEMIDE
     Indication: OSTEOARTHRITIS
     Dosage: DATES OF USE - RECENT
     Route: 048
  6. NS 0.45% WITH KCL 20 MEQ/L INFUSION [Suspect]
     Active Substance: POTASSIUM CHLORIDE\SODIUM CHLORIDE
     Dosage: DOSE - 20 MEQ/L INFUSION
  7. MOBIC [Suspect]
     Active Substance: MELOXICAM
     Route: 048
  8. ASPIRIN. [Concomitant]
     Active Substance: ASPIRIN
  9. HYDRALAZINE [Concomitant]
     Active Substance: HYDRALAZINE HYDROCHLORIDE
  10. CELECOXIB. [Suspect]
     Active Substance: CELECOXIB
     Indication: OSTEOARTHRITIS
     Dosage: DATES OF USE - RECENT
     Route: 048
  11. ATORVASTATIN [Concomitant]
     Active Substance: ATORVASTATIN

REACTIONS (3)
  - Hypoperfusion [None]
  - Condition aggravated [None]
  - Acute kidney injury [None]

NARRATIVE: CASE EVENT DATE: 20171007
